FAERS Safety Report 4984389-0 (Version None)
Quarter: 2006Q2

REPORT INFORMATION
  Report Type: 
  Country: None (occurrence: None)
  Receive Date: 20060420
  Receipt Date: 20060411
  Transmission Date: 20061013
  Serious: Yes (Hospitalization, Other)
  Sender: FDA-Public Use
  Company Number: 2006-04-0899

PATIENT
  Sex: Male

DRUGS (1)
  1. FLUTAMIDE [Suspect]
     Indication: PROSTATE CANCER
     Dosage: 375 MG QD ORAL
     Route: 048
     Dates: end: 20060301

REACTIONS (1)
  - GASTRIC ULCER [None]
